FAERS Safety Report 4480246-7 (Version None)
Quarter: 2004Q4

REPORT INFORMATION
  Report Type: 
  Country: None (occurrence: None)
  Receive Date: 20041020
  Receipt Date: 20041013
  Transmission Date: 20050328
  Serious: Yes (Hospitalization)
  Sender: FDA-Public Use
  Company Number: US-MERCK-0410USA02057

PATIENT
  Age: 58 Year
  Sex: Female

DRUGS (5)
  1. VIOXX [Suspect]
     Indication: ARTHRITIS
     Route: 048
     Dates: start: 19990101
  2. PREMARIN [Concomitant]
     Route: 065
  3. ALTACE [Concomitant]
     Route: 065
  4. TOPROL-XL [Concomitant]
     Route: 065
  5. ISOSORBIDE MONONITRATE ER [Concomitant]
     Route: 065

REACTIONS (1)
  - MYOCARDIAL INFARCTION [None]
